FAERS Safety Report 4676535-3 (Version None)
Quarter: 2005Q2

REPORT INFORMATION
  Report Type: 
  Country: None (occurrence: None)
  Receive Date: 20050526
  Receipt Date: 20050414
  Transmission Date: 20051028
  Serious: Yes (Death)
  Sender: FDA-Public Use
  Company Number: 2005S1002429

PATIENT
  Age: 84 Year
  Sex: Male

DRUGS (10)
  1. CLOZAPINE [Suspect]
     Indication: HALLUCINATION
     Dosage: 200 MG; HS; PO
     Route: 048
     Dates: start: 20031210, end: 20050301
  2. CARBIDOPA AND LEVODOPA [Concomitant]
  3. ENTACAPONE [Concomitant]
  4. PRAMIPEXOLE [Concomitant]
  5. DIHYDROCHLORIDE [Concomitant]
  6. MEMATINE [Concomitant]
  7. VERAPAMIL [Concomitant]
  8. SEROQUEL [Concomitant]
  9. DONEPEZIL HCL [Concomitant]
  10. CLOPIDOGREL BISULFATE [Concomitant]

REACTIONS (3)
  - CARDIAC DISORDER [None]
  - DYSPNOEA [None]
  - FALL [None]
